FAERS Safety Report 6252639-9 (Version None)
Quarter: 2009Q2

REPORT INFORMATION
  Report Type: 
  Country: None (occurrence: None)
  Receive Date: 20090629
  Receipt Date: 20090617
  Transmission Date: 20091009
  Serious: Yes (Other)
  Sender: FDA-Public Use
  Company Number: CHPA2009US01477

PATIENT
  Age: 52 Year
  Sex: Male

DRUGS (1)
  1. VOLTAREN [Suspect]
     Indication: INFLAMMATION
     Dosage: TID, TOPICAL
     Route: 061
     Dates: start: 20090121, end: 20090124

REACTIONS (7)
  - APPLICATION SITE IRRITATION [None]
  - BONE DISORDER [None]
  - BURNING SENSATION [None]
  - DRUG ADMINISTERED AT INAPPROPRIATE SITE [None]
  - SKIN DISORDER [None]
  - SUTURE RUPTURE [None]
  - WRONG TECHNIQUE IN DRUG USAGE PROCESS [None]
